FAERS Safety Report 4431762-5 (Version None)
Quarter: 2004Q3

REPORT INFORMATION
  Report Type: 
  Country: None (occurrence: None)
  Receive Date: 20040818
  Receipt Date: 20040804
  Transmission Date: 20050211
  Serious: Yes (Hospitalization)
  Sender: FDA-Public Use
  Company Number: F01200400842

PATIENT
  Age: 80 Year
  Sex: Male

DRUGS (4)
  1. OXALIPLATIN - SOLUTION - 130 MG/M2 [Suspect]
     Indication: COLORECTAL CANCER METASTATIC
     Dosage: 130 MG/M2 Q3W, INTRAVENOUS NOS
     Route: 042
     Dates: start: 20040324, end: 20040324
  2. (CAPECITABINE) - TABLET - 1650 MG [Suspect]
     Dosage: 1000 MG/M2 TWICE DAILY FROM DAY 1 TO DAY 15, Q3W, ORAL
     Route: 048
     Dates: start: 20040302, end: 20040324
  3. CAPTOPRIL [Concomitant]
  4. FUROSEMIDE [Concomitant]

REACTIONS (4)
  - ASTHENIA [None]
  - DIARRHOEA [None]
  - GENERAL PHYSICAL HEALTH DETERIORATION [None]
  - NEUTROPENIA [None]
